FAERS Safety Report 16932892 (Version 2)
Quarter: 2019Q4

REPORT INFORMATION
  Report Type: Spontaneous
  Country: JP (occurrence: JP)
  Receive Date: 20191018
  Receipt Date: 20191210
  Transmission Date: 20200122
  Serious: Yes (Hospitalization)
  Sender: FDA-Public Use
  Company Number: JP-TAKEDA-2019TJP022681

PATIENT
  Age: 6 Decade
  Sex: Male

DRUGS (2)
  1. ROZEREM [Suspect]
     Active Substance: RAMELTEON
     Indication: INITIAL INSOMNIA
     Dosage: 8 MILLIGRAM
     Route: 065
     Dates: end: 20190910
  2. FLOMOX                             /01418603/ [Concomitant]
     Active Substance: CEFCAPENE PIVOXIL HYDROCHLORIDE
     Indication: TOOTH EXTRACTION
     Dosage: UNK
     Route: 065

REACTIONS (1)
  - Tubulointerstitial nephritis [Recovering/Resolving]

NARRATIVE: CASE EVENT DATE: 20190910
